FAERS Safety Report 15771302 (Version 1)
Quarter: 2018Q4

REPORT INFORMATION
  Report Type: Report from Study
  Country: TR (occurrence: TR)
  Receive Date: 20181228
  Receipt Date: 20181228
  Transmission Date: 20190205
  Serious: Yes (Other)
  Sender: FDA-Public Use
  Company Number: TR-TEVA-2018-TR-993417

PATIENT

DRUGS (13)
  1. DEXAMETHASONE. [Suspect]
     Active Substance: DEXAMETHASONE
     Indication: ACUTE LYMPHOCYTIC LEUKAEMIA
     Dosage: EARLY AND DELAYED INTENSIFICATION1, 2 AND 3 PHASE: 20MG/M2 ON DAYS 1-5 TAPERED ON DAYS 6-8,
     Route: 065
  2. METHOTREXATE. [Suspect]
     Active Substance: METHOTREXATE
     Indication: ACUTE LYMPHOCYTIC LEUKAEMIA
     Dosage: EARLY AND DELAYED INTENSIFICATION-1, 2 AND 3 PHASE: 3000MG/M2 ON DAYS 1, WEEKS 7-8, 11-12,
     Route: 042
  3. MERCAPTOPURINE. [Suspect]
     Active Substance: MERCAPTOPURINE
     Indication: ACUTE LYMPHOCYTIC LEUKAEMIA
     Dosage: EARLY AND DELAYED INTENSIFICATION-1 PHASE: ON DAYS 1-5, WEEKS 7-8 AND 19-20
     Route: 042
  4. PREDNISONE. [Suspect]
     Active Substance: PREDNISONE
     Indication: ACUTE LYMPHOCYTIC LEUKAEMIA
     Dosage: INDUCTION PHASE OF PETHEMA ALL-93 REGIMEN; ON DAYS 1-38; WEEKS 1-6
     Route: 065
  5. VINCRISTINE [Suspect]
     Active Substance: VINCRISTINE
     Indication: ACUTE LYMPHOCYTIC LEUKAEMIA
     Dosage: INDUCTION PHASE OF PETHEMA ALL-93 REGIMEN: ON DAYS 1, 8, 15 AND 22, WEEKS 1-6;
     Route: 042
  6. CYCLOPHOSPHAMIDE. [Suspect]
     Active Substance: CYCLOPHOSPHAMIDE
     Indication: ACUTE LYMPHOCYTIC LEUKAEMIA
     Dosage: INDUCTION PHASE OF PETHEMA ALL-93 REGIMEN: ON DAY-36, WEEKS 1-6;
     Route: 042
  7. CYTARABINE. [Suspect]
     Active Substance: CYTARABINE
     Indication: ACUTE LYMPHOCYTIC LEUKAEMIA
     Dosage: EARLY AND DELAYED INTENSIFICATION-1 PHASE: 2000MG/M2 ON DAY-5, WEEKS 7-8 AND 19-20
     Route: 042
  8. L-ASPARAGINASE [Suspect]
     Active Substance: ASPARAGINASE
     Indication: ACUTE LYMPHOCYTIC LEUKAEMIA
     Dosage: INDUCTION PHASE OF PETHEMA ALL-93 REGIMEN: 10000 IU/M2 ON DAYS 16-20 AND DAYS 23-27, WEEKS 1-6;
     Route: 042
  9. MITOXANTRONE [Suspect]
     Active Substance: MITOXANTRONE HYDROCHLORIDE
     Indication: ACUTE LYMPHOCYTIC LEUKAEMIA
     Dosage: EARLY AND DELAYED INTENSIFICATION-2 PHASE: ON DAYS-5, WEEKS 11-12 AND 23-24
     Route: 042
  10. CYCLOPHOSPHAMIDE. [Suspect]
     Active Substance: CYCLOPHOSPHAMIDE
     Indication: ACUTE LYMPHOCYTIC LEUKAEMIA
     Dosage: EARLY AND DELAYED INTENSIFICATION-2 PHASE: 150MG/M2 ON DAYS 1-5, WEEKS 7-8 AND 23-24
     Route: 042
  11. CYTARABINE. [Suspect]
     Active Substance: CYTARABINE
     Indication: ACUTE LYMPHOCYTIC LEUKAEMIA
     Dosage: EARLY AND DELAYED INTENSIFICATION-3 PHASE: ON DAYS 1-2, WEEKS 15-16 AND 27-28
     Route: 042
  12. DAUNORUBICIN [Suspect]
     Active Substance: DAUNORUBICIN
     Indication: ACUTE LYMPHOCYTIC LEUKAEMIA
     Dosage: INDUCTION PHASE OF PETHEMA ALL-93 REGIMEN; ON DAYS 1, 8, 15 AND 22; WEEKS 1-6
     Route: 042
  13. TENIPOSIDE. [Suspect]
     Active Substance: TENIPOSIDE
     Indication: ACUTE LYMPHOCYTIC LEUKAEMIA
     Dosage: EARLY AND DELAYED INTENSIFICATION-3 PHASE: ON DAYS 3-4, WEEKS 15-16 AND 27-28
     Route: 042

REACTIONS (1)
  - Aspergillus infection [Unknown]
